FAERS Safety Report 12619083 (Version 2)
Quarter: 2017Q1

REPORT INFORMATION
  Report Type: Report from Study
  Country: CA (occurrence: CA)
  Receive Date: 20160803
  Receipt Date: 20170120
  Transmission Date: 20170428
  Serious: Yes (Death)
  Sender: FDA-Public Use
  Company Number: CA-HLSUS-2016-CA-000225

PATIENT
  Age: 75 Year
  Sex: Female
  Weight: 43.5 kg

DRUGS (7)
  1. ATIVAN [Concomitant]
     Active Substance: LORAZEPAM
  2. SYNTHROID [Concomitant]
     Active Substance: LEVOTHYROXINE SODIUM
     Dosage: 42.5 ID
     Route: 048
  3. CLOZARIL [Suspect]
     Active Substance: CLOZAPINE
     Indication: BIPOLAR DISORDER
     Dosage: 112.5
     Route: 048
     Dates: start: 19980815, end: 20160612
  4. INSULIN [Concomitant]
     Active Substance: INSULIN NOS
     Dosage: GLYCEMIC
  5. IRON [Concomitant]
     Active Substance: IRON
  6. LITHIUM. [Concomitant]
     Active Substance: LITHIUM
  7. LIPITOR [Concomitant]
     Active Substance: ATORVASTATIN CALCIUM

REACTIONS (2)
  - General physical health deterioration [Unknown]
  - Death [Fatal]

NARRATIVE: CASE EVENT DATE: 20170117
